FAERS Safety Report 9043478 (Version 1)
Quarter: 2013Q1

REPORT INFORMATION
  Report Type: Report from Study
  Country: US (occurrence: US)
  Receive Date: 20130129
  Receipt Date: 20130129
  Transmission Date: 20140127
  Serious: No
  Sender: FDA-Public Use
  Company Number: US-ABBOTT-12P-163-0912808-00

PATIENT
  Sex: Male
  Weight: 107.6 kg

DRUGS (4)
  1. HUMIRA 40 MG/0.8 ML PEN [Suspect]
     Indication: PSORIASIS
     Dates: start: 2008
  2. HUMIRA 40 MG/0.8 ML PEN [Suspect]
     Indication: RHEUMATOID ARTHRITIS
  3. UNKNOWN MEDICATIONS [Concomitant]
     Indication: HYPERTENSION
     Dates: start: 1992
  4. JANUVIA [Concomitant]
     Indication: DIABETES MELLITUS

REACTIONS (3)
  - Blood pressure increased [Not Recovered/Not Resolved]
  - Blood pressure abnormal [None]
  - Headache [Not Recovered/Not Resolved]
